FAERS Safety Report 21059781 (Version 1)
Quarter: 2022Q3

REPORT INFORMATION
  Report Type: Report from Study
  Country: AU (occurrence: AU)
  Receive Date: 20220708
  Receipt Date: 20220708
  Transmission Date: 20221027
  Serious: Yes (Hospitalization, Other)
  Sender: FDA-Public Use
  Company Number: AU-ABBVIE-22K-008-4453160-00

PATIENT
  Sex: Male

DRUGS (1)
  1. LEUPROLIDE ACETATE [Suspect]
     Active Substance: LEUPROLIDE ACETATE
     Indication: Prostate cancer
     Route: 030

REACTIONS (6)
  - Prostate cancer metastatic [Unknown]
  - Hospitalisation [Unknown]
  - Ulcer haemorrhage [Unknown]
  - Weight decreased [Unknown]
  - Muscle atrophy [Unknown]
  - Diarrhoea [Unknown]
